FAERS Safety Report 8249521-4 (Version None)
Quarter: 2012Q1

REPORT INFORMATION
  Report Type: 
  Country: None (occurrence: None)
  Receive Date: 20120316
  Receipt Date: 20110125
  Transmission Date: 20120608
  Serious: Yes (Other)
  Sender: FDA-Public Use
  Company Number: PHHY2011US01610

PATIENT
  Age: 65 Year
  Sex: Female

DRUGS (3)
  1. TOPROL-XL [Concomitant]
  2. TEKTURNA [Suspect]
     Dosage: 150 MG (1 IN THE NIGHT), ORAL; 150 MG, ORAL
     Route: 048
  3. TEKTURNA HCT [Suspect]
     Dosage: 150 MG OF ALISK AND 12.5 MG (1 IN THE MORNING), ORAL; ORAL
     Route: 048
     Dates: start: 20110101

REACTIONS (6)
  - NAUSEA [None]
  - HEART RATE INCREASED [None]
  - DIZZINESS [None]
  - HYPERTENSION [None]
  - FEELING ABNORMAL [None]
  - BLOOD PRESSURE INADEQUATELY CONTROLLED [None]
